FAERS Safety Report 14136152 (Version 2)
Quarter: 2018Q1

REPORT INFORMATION
  Report Type: Report from Study
  Country: US (occurrence: US)
  Receive Date: 20171027
  Receipt Date: 20180123
  Transmission Date: 20180508
  Serious: No
  Sender: FDA-Public Use
  Company Number: US-AMGEN-USASL2017153491

PATIENT
  Age: 44 Year
  Sex: Female
  Weight: 50.34 kg

DRUGS (2)
  1. REPATHA [Suspect]
     Active Substance: EVOLOCUMAB
     Indication: TYPE IIA HYPERLIPIDAEMIA
     Dosage: 140 MG, Q2WK
     Route: 058
     Dates: start: 20170217, end: 201710
  2. ATORVASTATIN [Concomitant]
     Active Substance: ATORVASTATIN
     Dosage: UNK

REACTIONS (11)
  - Pain [Unknown]
  - Dyspnoea [Recovered/Resolved]
  - Pruritus [Recovered/Resolved]
  - Fatigue [Unknown]
  - Influenza [Recovered/Resolved]
  - Chest pain [Unknown]
  - Myalgia [Recovered/Resolved]
  - Lethargy [Unknown]
  - Swelling [Recovered/Resolved]
  - Exercise tolerance decreased [Recovered/Resolved]
  - Injection site urticaria [Recovered/Resolved]

NARRATIVE: CASE EVENT DATE: 2017
